FAERS Safety Report 9117039 (Version 1)
Quarter: 2013Q1

REPORT INFORMATION
  Report Type: Spontaneous
  Country: FR (occurrence: FR)
  Receive Date: 20130225
  Receipt Date: 20130225
  Transmission Date: 20140127
  Serious: Yes (Hospitalization)
  Sender: FDA-Public Use
  Company Number: FR-JNJFOC-20130210603

PATIENT
  Age: 0 Year
  Sex: Male
  Weight: 1.55 kg

DRUGS (1)
  1. REMICADE [Suspect]
     Indication: FOETAL EXPOSURE DURING PREGNANCY
     Route: 064
     Dates: start: 20110914

REACTIONS (4)
  - Premature baby [Recovered/Resolved]
  - Respiratory distress [Recovering/Resolving]
  - Apgar score low [Recovering/Resolving]
  - Bronchiolitis [Not Recovered/Not Resolved]
